FAERS Safety Report 25862235 (Version 1)
Quarter: 2025Q3

REPORT INFORMATION
  Report Type: Spontaneous
  Country: US (occurrence: US)
  Receive Date: 20250930
  Receipt Date: 20250930
  Transmission Date: 20251021
  Serious: Yes (Other)
  Sender: OREXO
  Company Number: US-OREXO-ORE202508-000047

PATIENT
  Sex: Female

DRUGS (5)
  1. ZUBSOLV [Suspect]
     Active Substance: BUPRENORPHINE HYDROCHLORIDE\NALOXONE HYDROCHLORIDE
     Indication: Drug dependence
     Route: 065
  2. ZOLOFT [Concomitant]
     Active Substance: SERTRALINE HYDROCHLORIDE
     Indication: Product used for unknown indication
     Route: 065
  3. LEXAPRO [Concomitant]
     Active Substance: ESCITALOPRAM OXALATE
     Indication: Product used for unknown indication
     Route: 065
  4. GABAPENTIN [Concomitant]
     Active Substance: GABAPENTIN
     Indication: Product used for unknown indication
     Route: 065
  5. QUINIDINE [Concomitant]
     Active Substance: QUINIDINE
     Indication: Sleep disorder
     Route: 065

REACTIONS (6)
  - Suicidal ideation [Unknown]
  - Tooth loss [Unknown]
  - Major depression [Unknown]
  - Oral mucosal blistering [Unknown]
  - Dental caries [Unknown]
  - Anxiety [Unknown]
